FAERS Safety Report 6639483-5 (Version None)
Quarter: 2010Q1

REPORT INFORMATION
  Report Type: 
  Country: None (occurrence: None)
  Receive Date: 20100315
  Receipt Date: 20100302
  Transmission Date: 20100710
  Serious: Yes (Death, Hospitalization)
  Sender: FDA-Public Use
  Company Number: 2009AC000320

PATIENT
  Age: 69 Year
  Sex: Male

DRUGS (23)
  1. DIGOXIN [Suspect]
     Dosage: .125 MG;QD;PO
     Route: 048
     Dates: start: 20080206, end: 20080321
  2. LIPITOR [Concomitant]
  3. LASIX [Concomitant]
  4. K-DUR [Concomitant]
  5. LOPRESSOR [Concomitant]
  6. LISINOPRIL [Concomitant]
  7. PREVACID [Concomitant]
  8. CALCITRIOL [Concomitant]
  9. SODIUM BICARBONATE [Concomitant]
  10. LANTUS [Concomitant]
  11. ASPIRIN [Concomitant]
  12. NITROGLYCERIN [Concomitant]
  13. CLINDAMYCIN [Concomitant]
  14. . [Concomitant]
  15. LEVAQUIN [Concomitant]
  16. PROCRIT INJECTIONS [Concomitant]
  17. MINITRAN PATCH [Concomitant]
  18. PLAVIX [Concomitant]
  19. LORTAB [Concomitant]
  20. ZOSYN [Concomitant]
  21. MORPHINE [Concomitant]
  22. CARDIZEM [Concomitant]
  23. ALTACE [Concomitant]

REACTIONS (25)
  - BEDRIDDEN [None]
  - CARDIAC FAILURE CONGESTIVE [None]
  - CHROMATURIA [None]
  - CORONARY ARTERY DISEASE [None]
  - DECREASED APPETITE [None]
  - DECUBITUS ULCER [None]
  - DIALYSIS [None]
  - DIARRHOEA [None]
  - ECONOMIC PROBLEM [None]
  - EMPYEMA [None]
  - HYPOTENSION [None]
  - LEFT VENTRICULAR DYSFUNCTION [None]
  - MENTAL STATUS CHANGES [None]
  - MULTIPLE INJURIES [None]
  - MYOCARDIAL INFARCTION [None]
  - NAUSEA [None]
  - OEDEMA PERIPHERAL [None]
  - ORTHOPNOEA [None]
  - PALPITATIONS [None]
  - PLEURAL EFFUSION [None]
  - PNEUMONIA [None]
  - RENAL FAILURE ACUTE [None]
  - THERAPEUTIC AGENT TOXICITY [None]
  - URINARY TRACT INFECTION [None]
  - VOMITING [None]
